FAERS Safety Report 21771050 (Version 1)
Quarter: 2022Q4

REPORT INFORMATION
  Report Type: Spontaneous
  Country: JP (occurrence: JP)
  Receive Date: 20221223
  Receipt Date: 20221223
  Transmission Date: 20230112
  Serious: Yes (Hospitalization, Other)
  Sender: FDA-Public Use
  Company Number: JP-002147023-NVSJ2022JP276553

PATIENT

DRUGS (2)
  1. ILARIS [Suspect]
     Active Substance: CANAKINUMAB
     Indication: Still^s disease
     Dosage: UNK
     Route: 058
  2. ILARIS [Suspect]
     Active Substance: CANAKINUMAB
     Dosage: UNK
     Route: 058

REACTIONS (7)
  - Hepatic function abnormal [Unknown]
  - Ascites [Unknown]
  - Abdominal pain [Unknown]
  - Autoimmune hepatitis [Unknown]
  - Still^s disease [Unknown]
  - Disease recurrence [Unknown]
  - Viral infection [Unknown]

NARRATIVE: CASE EVENT DATE: 20221101
